FAERS Safety Report 12898850 (Version 1)
Quarter: 2016Q4

REPORT INFORMATION
  Report Type: Spontaneous
  Country: US (occurrence: US)
  Receive Date: 20161101
  Receipt Date: 20161101
  Transmission Date: 20170207
  Serious: No
  Sender: FDA-Public Use
  Company Number: US-ASTRAZENECA-2016SF11701

PATIENT
  Sex: Female

DRUGS (6)
  1. ZURAMPIC [Suspect]
     Active Substance: LESINURAD
     Indication: BLOOD URIC ACID INCREASED
     Route: 048
     Dates: start: 20161013, end: 20161019
  2. CEFDINIR. [Concomitant]
     Active Substance: CEFDINIR
     Indication: ANTIBIOTIC THERAPY
  3. ULORIC [Concomitant]
     Active Substance: FEBUXOSTAT
     Indication: GOUT
  4. LISINOPRIL. [Suspect]
     Active Substance: LISINOPRIL
     Route: 048
  5. BYSTOLIC [Concomitant]
     Active Substance: NEBIVOLOL HYDROCHLORIDE
  6. ZURAMPIC [Suspect]
     Active Substance: LESINURAD
     Indication: GOUT
     Route: 048
     Dates: start: 20161013, end: 20161019

REACTIONS (2)
  - Gout [Unknown]
  - Rash [Unknown]
